FAERS Safety Report 18250854 (Version 2)
Quarter: 2022Q3

REPORT INFORMATION
  Report Type: Spontaneous
  Country: US (occurrence: US)
  Receive Date: 20200910
  Receipt Date: 20220714
  Transmission Date: 20221027
  Serious: Yes (Other)
  Sender: FDA-Public Use
  Company Number: US-SAARTEMIS-SAC202009080021

PATIENT
  Age: 53 Year
  Sex: Female

DRUGS (1)
  1. ZANTAC [Suspect]
     Active Substance: RANITIDINE HYDROCHLORIDE
     Indication: Gastrooesophageal reflux disease
     Dosage: 150 MG, QD
     Route: 065
     Dates: start: 201310, end: 201503

REACTIONS (2)
  - Pancreatic carcinoma stage II [Not Recovered/Not Resolved]
  - Renal cancer stage II [Not Recovered/Not Resolved]

NARRATIVE: CASE EVENT DATE: 20200801
